FAERS Safety Report 7403082-8 (Version None)
Quarter: 2011Q2

REPORT INFORMATION
  Report Type: 
  Country: None (occurrence: None)
  Receive Date: 20110408
  Receipt Date: 20110311
  Transmission Date: 20111010
  Serious: No
  Sender: FDA-Public Use
  Company Number: US-NOVEN-11US001962

PATIENT
  Sex: Female

DRUGS (2)
  1. TYLENOL (CAPLET) [Concomitant]
     Indication: PAIN
     Route: 048
  2. FENTANYL [Suspect]
     Indication: OSTEOPOROSIS
     Dosage: 50 UG, 1 PATCH EVERY OTHER DAY
     Route: 062
     Dates: start: 20110101

REACTIONS (3)
  - PRODUCT QUALITY ISSUE [None]
  - INADEQUATE ANALGESIA [None]
  - DRUG ADMINISTRATION ERROR [None]
